FAERS Safety Report 11149805 (Version 1)
Quarter: 2015Q2

REPORT INFORMATION
  Report Type: Spontaneous
  Country: US (occurrence: US)
  Receive Date: 20150529
  Receipt Date: 20150529
  Transmission Date: 20150821
  Serious: Yes (Other)
  Sender: FDA-Public Use
  Company Number: US-SHIRE-US201504582

PATIENT
  Age: 26 Year
  Sex: Male

DRUGS (1)
  1. 476 (MESALAZINE/MESALAMINE) [Suspect]
     Active Substance: MESALAMINE
     Indication: CROHN^S DISEASE
     Dosage: UNK, UNKNOWN
     Route: 048

REACTIONS (4)
  - Coeliac disease [Unknown]
  - Condition aggravated [Unknown]
  - Product use issue [Unknown]
  - Crohn^s disease [Unknown]
